FAERS Safety Report 5590190-X (Version None)
Quarter: 2007Q4

REPORT INFORMATION
  Report Type: 
  Country: None (occurrence: None)
  Receive Date: 20071217
  Receipt Date: 20070921
  Transmission Date: 20080405
  Serious: No
  Sender: FDA-Public Use
  Company Number: BDI-010222

PATIENT
  Age: 16 Year
  Sex: Female
  Weight: 46.36 kg

DRUGS (2)
  1. MULTIHANCE [Suspect]
     Indication: DEVELOPMENTAL DELAY
     Dosage: 9 ML ONCE IV
     Route: 042
     Dates: start: 20070921, end: 20070921
  2. MULTIHANCE [Suspect]
     Indication: NUCLEAR MAGNETIC RESONANCE IMAGING BRAIN
     Dosage: 9 ML ONCE IV
     Route: 042
     Dates: start: 20070921, end: 20070921

REACTIONS (1)
  - ANAPHYLACTOID REACTION [None]
